FAERS Safety Report 4537626-0 (Version None)
Quarter: 2004Q4

REPORT INFORMATION
  Report Type: 
  Country: None (occurrence: None)
  Receive Date: 20041220
  Receipt Date: 20030624
  Transmission Date: 20050328
  Serious: Yes (Other)
  Sender: FDA-Public Use
  Company Number: 200410471BBE

PATIENT
  Sex: Male

DRUGS (8)
  1. HYPRHO-D [Suspect]
  2. INJECTABLE GLOBULIN (JOHNSON AND JOHSON)(IMMUNOGLOBULINS) [Suspect]
  3. INJECTABLE GLOBULIN (ORTHOCLININCAL DIAGNOSTICS)(IMMUNOGLOBULINS) [Suspect]
  4. INJECTABLE GLOBULIN ADVENTIS PASTEUR) (IMMUNOGLOBULINS) [Suspect]
  5. INJECTABLE GLOBULIN (JDOW AGRO SCIENCES) (IMMUNOGLOBULINS) [Suspect]
  6. INJECTABLE GLOBULIN (DOW CHEMICAL SCIENCES) (IMMUNOGLOBULINS) [Suspect]
  7. INJECTABLE GLOBULIN (ELI LILLY) (IMMUNOGLOBULINS) [Suspect]
  8. INJECTABLE GLOBULIN (JGLAXOSMITHKLINE) (IMMUNOGLOBULINS) [Suspect]

REACTIONS (3)
  - DRUG EXPOSURE DURING PREGNANCY [None]
  - METAL POISONING [None]
  - NEUROTOXICITY [None]
